FAERS Safety Report 11663425 (Version 1)
Quarter: 2015Q4

REPORT INFORMATION
  Report Type: Spontaneous
  Country: US (occurrence: None)
  Receive Date: 20151026
  Receipt Date: 20151026
  Transmission Date: 20160304
  Serious: Yes (Hospitalization)
  Sender: FDA-Public Use
  Company Number: None

PATIENT
  Age: 1 Month
  Sex: Male
  Weight: 3.5 kg

DRUGS (6)
  1. LACTOBACILLUS ACIDOPHILUS AND BULGARICUS GRANULES [Concomitant]
  2. CHOLECALCIFEROL [Concomitant]
     Active Substance: CHOLECALCIFEROL
  3. D5 0.45% NACL 20 MEQ KCL/L IV SOLUTION [Concomitant]
  4. CEFTRIAXONE. [Concomitant]
     Active Substance: CEFTRIAXONE
  5. ZOSYN [Suspect]
     Active Substance: PIPERACILLIN SODIUM\TAZOBACTAM SODIUM
     Indication: SEPSIS
     Route: 042
     Dates: start: 20151020, end: 20151023
  6. SODIUM CHLORIDE 0.9% IV SOLUTION [Concomitant]

REACTIONS (1)
  - Thrombocytopenia [None]

NARRATIVE: CASE EVENT DATE: 20151024
